FAERS Safety Report 16673204 (Version 5)
Quarter: 2020Q1

REPORT INFORMATION
  Report Type: Report from Study
  Country: JP (occurrence: JP)
  Receive Date: 20190806
  Receipt Date: 20200310
  Transmission Date: 20200409
  Serious: Yes (Hospitalization, Other)
  Sender: FDA-Public Use
  Company Number: PHJP2019JP010100

PATIENT
  Age: 18 Year
  Sex: Male
  Weight: 24 kg

DRUGS (28)
  1. ILARIS [Suspect]
     Active Substance: CANAKINUMAB
     Dosage: 48 MG, UNK
     Route: 058
     Dates: start: 20180501
  2. ILARIS [Suspect]
     Active Substance: CANAKINUMAB
     Dosage: 48 MG, UNK
     Route: 058
     Dates: start: 20180620
  3. ILARIS [Suspect]
     Active Substance: CANAKINUMAB
     Dosage: 88 MG, UNK
     Route: 058
     Dates: start: 20180821
  4. ILARIS [Suspect]
     Active Substance: CANAKINUMAB
     Dosage: 88 MG, UNK
     Route: 058
     Dates: start: 20190225
  5. PREDNISOLONE. [Concomitant]
     Active Substance: PREDNISOLONE
     Indication: FAMILIAL MEDITERRANEAN FEVER
     Dosage: UNK
     Route: 048
  6. ILARIS [Suspect]
     Active Substance: CANAKINUMAB
     Dosage: 88 MG, UNK
     Route: 058
     Dates: start: 20180918
  7. ILARIS [Suspect]
     Active Substance: CANAKINUMAB
     Dosage: 88 MG, UNK
     Route: 058
     Dates: start: 20190128
  8. PREDONINE [Concomitant]
     Active Substance: PREDNISOLONE
     Indication: FAMILIAL MEDITERRANEAN FEVER
     Dosage: UNK
     Route: 048
  9. PREDNISOLONE. [Concomitant]
     Active Substance: PREDNISOLONE
     Dosage: 7 MG, QD
     Route: 065
     Dates: start: 20180725
  10. CALFINA [Concomitant]
     Active Substance: ALFACALCIDOL
     Indication: PROPHYLAXIS
     Dosage: UNK
     Route: 065
  11. ILARIS [Suspect]
     Active Substance: CANAKINUMAB
     Indication: FAMILIAL MEDITERRANEAN FEVER
     Dosage: 48 MG, UNK
     Route: 058
     Dates: start: 20180305
  12. ILARIS [Suspect]
     Active Substance: CANAKINUMAB
     Dosage: 88 MG, UNK
     Route: 058
     Dates: start: 20181016
  13. ILARIS [Suspect]
     Active Substance: CANAKINUMAB
     Dosage: 88 MG, UNK
     Route: 058
     Dates: start: 20190108
  14. PREDNISOLONE. [Concomitant]
     Active Substance: PREDNISOLONE
     Dosage: 6 MG, QD
     Route: 065
     Dates: start: 20180808
  15. FEBURIC [Concomitant]
     Active Substance: FEBUXOSTAT
     Indication: FAMILIAL MEDITERRANEAN FEVER
     Dosage: UNK
     Route: 065
  16. VANCOMYCIN [Concomitant]
     Active Substance: VANCOMYCIN
     Indication: PRODUCT USED FOR UNKNOWN INDICATION
     Dosage: UNK
     Route: 065
  17. COLCHICINE. [Concomitant]
     Active Substance: COLCHICINE
     Indication: FAMILIAL MEDITERRANEAN FEVER
     Dosage: 0.5 MG, UNK
     Route: 048
     Dates: start: 20170916, end: 20181121
  18. FERROUS SODIUM CITRATE [Concomitant]
     Active Substance: SODIUM FERROUS CITRATE
     Indication: FAMILIAL MEDITERRANEAN FEVER
     Dosage: UNK
     Route: 048
  19. BIO-THREE [Concomitant]
     Active Substance: HERBALS
     Indication: PROPHYLAXIS
     Dosage: UNK
     Route: 065
  20. ILARIS [Suspect]
     Active Substance: CANAKINUMAB
     Dosage: 48 MG, UNK
     Route: 058
     Dates: start: 20180529
  21. METOLATE [Concomitant]
     Active Substance: METHOTREXATE
     Indication: FAMILIAL MEDITERRANEAN FEVER
     Dosage: UNK
     Route: 048
  22. ARGAMATE [Concomitant]
     Active Substance: CALCIUM POLYSTYRENE SULFONATE
     Indication: PROPHYLAXIS
     Dosage: UNK
     Route: 065
  23. ILARIS [Suspect]
     Active Substance: CANAKINUMAB
     Dosage: 48 MG, UNK
     Route: 058
     Dates: start: 20180724
  24. COLCHICINE. [Concomitant]
     Active Substance: COLCHICINE
     Dosage: 0.5 MG, UNK
     Route: 048
     Dates: start: 20190105
  25. CLARITHROMYCIN. [Concomitant]
     Active Substance: CLARITHROMYCIN
     Indication: PROPHYLAXIS
     Dosage: UNK
     Route: 048
  26. ILARIS [Suspect]
     Active Substance: CANAKINUMAB
     Dosage: 48 MG, UNK
     Route: 058
     Dates: start: 20180403
  27. PROGRAF [Suspect]
     Active Substance: TACROLIMUS
     Indication: FAMILIAL MEDITERRANEAN FEVER
     Dosage: UNK
     Route: 048
     Dates: end: 20181113
  28. FESIN [SACCHARATED IRON OXIDE] [Concomitant]
     Active Substance: IRON SUCROSE
     Indication: FAMILIAL MEDITERRANEAN FEVER
     Dosage: UNK
     Route: 065

REACTIONS (19)
  - Pancytopenia [Unknown]
  - Cytomegalovirus gastrointestinal ulcer [Recovered/Resolved]
  - Haemophagocytic lymphohistiocytosis [Recovered/Resolved]
  - Serum ferritin increased [Recovering/Resolving]
  - Hypophagia [Unknown]
  - Dehydration [Unknown]
  - Haematochezia [Unknown]
  - Device related infection [Recovered/Resolved]
  - Blood culture positive [Recovered/Resolved]
  - Diarrhoea [Unknown]
  - Blood immunoglobulin G increased [Unknown]
  - Intestinal perforation [Recovered/Resolved]
  - Bacteraemia [Recovered/Resolved]
  - Pyrexia [Recovered/Resolved]
  - Concomitant disease aggravated [Recovered/Resolved]
  - Cytomegalovirus enterocolitis [Recovered/Resolved]
  - Abdominal pain [Unknown]
  - Fluid intake reduced [Unknown]
  - Blood immunoglobulin M increased [Unknown]

NARRATIVE: CASE EVENT DATE: 20181108
